FAERS Safety Report 5485567-7 (Version None)
Quarter: 2007Q4

REPORT INFORMATION
  Report Type: 
  Country: None (occurrence: None)
  Receive Date: 20071011
  Receipt Date: 20070926
  Transmission Date: 20080405
  Serious: Yes (Death, Hospitalization)
  Sender: FDA-Public Use
  Company Number: 060010L07JPN

PATIENT

DRUGS (2)
  1. CLOMIPHENE CITRATE [Suspect]
     Indication: OVULATION INDUCTION
  2. MENOTROPINS [Suspect]

REACTIONS (2)
  - DRUG EXPOSURE DURING PREGNANCY [None]
  - INTRA-UTERINE DEATH [None]
